FAERS Safety Report 7041774-3 (Version None)
Quarter: 2010Q4

REPORT INFORMATION
  Report Type: 
  Country: None (occurrence: None)
  Receive Date: 20101013
  Receipt Date: 20091009
  Transmission Date: 20110411
  Serious: No
  Sender: FDA-Public Use
  Company Number: US-ASTRAZENECA-2009SE19280

PATIENT
  Sex: Female
  Weight: 73.9 kg

DRUGS (1)
  1. SYMBICORT [Suspect]
     Dosage: 640 MCG BID
     Route: 055
     Dates: start: 20090907, end: 20091008

REACTIONS (2)
  - FEELING JITTERY [None]
  - HEART RATE INCREASED [None]
